FAERS Safety Report 10246213 (Version 1)
Quarter: 2014Q2

REPORT INFORMATION
  Report Type: Spontaneous
  Country: US (occurrence: US)
  Receive Date: 20140619
  Receipt Date: 20140619
  Transmission Date: 20141212
  Serious: Yes (Hospitalization)
  Sender: FDA-Public Use
  Company Number: US-BAYER-2014-090359

PATIENT
  Age: 19 Year
  Sex: Female
  Weight: 71.25 kg

DRUGS (5)
  1. YASMIN [Suspect]
     Indication: CONTRACEPTION
     Dosage: UNK, UNK
  2. YAZ [Suspect]
     Dosage: UNK
  3. ZITHROMAX [Concomitant]
     Dosage: 250 MG, UNK
  4. ADVIL [Concomitant]
     Dosage: UNK
     Dates: start: 20031125
  5. AMI-TEX [Concomitant]
     Dosage: UNK, UNK
     Dates: start: 20031125

REACTIONS (1)
  - Deep vein thrombosis [None]
